FAERS Safety Report 8764687 (Version 1)
Quarter: 2012Q4

REPORT INFORMATION
  Report Type: 
  Country: US (occurrence: US)
  Receive Date: 20120831
  Receipt Date: 20120831
  Transmission Date: 20130627
  Serious: Yes (Hospitalization, Other)
  Sender: FDA-Public Use
  Company Number: US-B.I. PHARMACEUTICALS,INC./RIDGEFIELD-2012-BP-20694BP

PATIENT
  Sex: Female

DRUGS (8)
  1. ZANTAC (RANITIDINE HYDROCHLORIDE) [Suspect]
     Indication: ULCER
     Dosage: 150 mg
     Route: 048
  2. EXTRA STRENGTH TYLENOL [Concomitant]
     Indication: PAIN
     Route: 048
  3. COUMADIN [Concomitant]
     Dosage: 7.5 mg
     Route: 048
     Dates: start: 2008
  4. GAS X [Concomitant]
     Indication: FLATULENCE
  5. MILK OF MAGNESIUM [Concomitant]
     Route: 048
  6. MIRALAX [Concomitant]
     Route: 048
     Dates: start: 201206
  7. TOPRAL XL [Concomitant]
     Indication: CARDIAC DISORDER
     Dosage: 200 mg
     Route: 048
     Dates: start: 2008
  8. XANAX [Concomitant]
     Indication: ANXIETY
     Dosage: 0.5 mg
     Route: 048

REACTIONS (10)
  - Breast cancer [Unknown]
  - Cholecystectomy [Unknown]
  - Pneumothorax [Recovered/Resolved]
  - Cardiac pacemaker insertion [Unknown]
  - Blood calcium increased [Recovered/Resolved]
  - Nonspecific reaction [Recovered/Resolved]
  - Flatulence [Not Recovered/Not Resolved]
  - Constipation [Not Recovered/Not Resolved]
  - Discomfort [Not Recovered/Not Resolved]
  - Dyspnoea [Not Recovered/Not Resolved]
